FAERS Safety Report 5057742-7 (Version None)
Quarter: 2006Q3

REPORT INFORMATION
  Report Type: 
  Country: None (occurrence: None)
  Receive Date: 20060721
  Receipt Date: 20060201
  Transmission Date: 20061208
  Serious: No
  Sender: FDA-Public Use
  Company Number: US-GLAXOSMITHKLINE-A0591952A

PATIENT
  Age: 59 Year
  Sex: Male

DRUGS (11)
  1. AVANDIA [Suspect]
     Dosage: 2MG UNKNOWN
     Route: 048
  2. AMARYL [Concomitant]
  3. PREDNISONE [Concomitant]
  4. PROGRAM 20 [Concomitant]
  5. MYFORTIC [Concomitant]
  6. ALLOPURINOL [Concomitant]
  7. LASIX [Concomitant]
  8. MINOXIDIL [Concomitant]
  9. LIPITOR [Concomitant]
  10. POTASSIUM SUPPLEMENT [Concomitant]
  11. MAGNESIUM SUPPLEMENT [Concomitant]

REACTIONS (1)
  - DRUG INEFFECTIVE [None]
